FAERS Safety Report 4963162-3 (Version None)
Quarter: 2006Q2

REPORT INFORMATION
  Report Type: 
  Country: None (occurrence: None)
  Receive Date: 20060405
  Receipt Date: 20050930
  Transmission Date: 20061013
  Serious: Yes (Hospitalization, Other)
  Sender: FDA-Public Use
  Company Number: US-MERCK-0510USA00935

PATIENT
  Age: 75 Year
  Sex: Male

DRUGS (2)
  1. VIOXX [Suspect]
     Indication: ARTHRITIS
     Route: 048
     Dates: end: 20021118
  2. ASPIRIN [Concomitant]
     Route: 048

REACTIONS (3)
  - CARDIAC DISORDER [None]
  - HEART INJURY [None]
  - THROMBOSIS [None]
